FAERS Safety Report 19880377 (Version 1)
Quarter: 2021Q3

REPORT INFORMATION
  Report Type: Spontaneous
  Country: GB (occurrence: GB)
  Receive Date: 20210924
  Receipt Date: 20210924
  Transmission Date: 20211014
  Serious: Yes (Life-Threatening, Other)
  Sender: FDA-Public Use
  Company Number: GB-MYLANLABS-2021M1065255

PATIENT
  Age: 69 Year
  Sex: Female
  Weight: 64 kg

DRUGS (6)
  1. AMLODIPINE [Concomitant]
     Active Substance: AMLODIPINE BESYLATE
     Dosage: 10 MILLIGRAM
  2. ATORVASTATIN [Suspect]
     Active Substance: ATORVASTATIN
     Indication: PRURITUS
     Dosage: AT NIGHT
     Route: 048
  3. VENTOLINE ROTACAPS [Concomitant]
     Indication: CHRONIC OBSTRUCTIVE PULMONARY DISEASE
     Dosage: 100 MICROGRAM (INHALER)
  4. DOCUSATE SODIUM. [Concomitant]
     Active Substance: DOCUSATE SODIUM
     Dosage: UNK
  5. SPIRIVA [Concomitant]
     Active Substance: TIOTROPIUM BROMIDE MONOHYDRATE
     Indication: CHRONIC OBSTRUCTIVE PULMONARY DISEASE
     Dosage: 2.5 MICROGRAM (RESPIMAT INHALER)
  6. OMEPRAZOLE. [Concomitant]
     Active Substance: OMEPRAZOLE
     Dosage: 20 MILLIGRAM

REACTIONS (7)
  - Pruritus [Recovered/Resolved]
  - Irritability [Unknown]
  - Rash erythematous [Unknown]
  - Urticaria [Unknown]
  - Insomnia [Unknown]
  - Anaphylactic reaction [Unknown]
  - Discomfort [Unknown]

NARRATIVE: CASE EVENT DATE: 202106
